FAERS Safety Report 7710439-4 (Version None)
Quarter: 2011Q3

REPORT INFORMATION
  Report Type: 
  Country: None (occurrence: None)
  Receive Date: 20110825
  Receipt Date: 20110815
  Transmission Date: 20111222
  Serious: Yes (Hospitalization, Other)
  Sender: FDA-Public Use
  Company Number: US-ELI_LILLY_AND_COMPANY-US200903003345

PATIENT
  Sex: Female

DRUGS (10)
  1. LISINOPRIL [Concomitant]
     Indication: HYPERTENSION
     Dosage: 20 MG, QD
  2. HYDROCHLOROTHIAZIDE [Concomitant]
     Indication: HYPERTENSION
     Dosage: 50 MG, QD
  3. ACTOPLUS MET [Concomitant]
     Indication: DIABETES MELLITUS
     Dosage: 1 DF, TID
  4. ASPIRIN [Concomitant]
     Indication: PAIN
     Dosage: 81 MG, QD
  5. BYETTA [Suspect]
     Dosage: 5 UG, BID
  6. VYTORIN [Concomitant]
     Indication: BLOOD CHOLESTEROL INCREASED
     Dosage: 1 DF, QD
  7. POTASSIUM [Concomitant]
     Dosage: 8 MEQ, QD
  8. BYETTA [Suspect]
     Indication: DIABETES MELLITUS
     Dosage: UNK, UNK
     Dates: start: 20071201, end: 20080610
  9. HYDROCHLOROTHIAZIDE [Concomitant]
     Dosage: 25 MG, QD
  10. BYETTA [Suspect]
     Dosage: 10 UG, BID

REACTIONS (5)
  - CHOLELITHIASIS [None]
  - RENAL INJURY [None]
  - PANCREATIC CARCINOMA [None]
  - PANCREATITIS CHRONIC [None]
  - WEIGHT DECREASED [None]
